FAERS Safety Report 20313991 (Version 2)
Quarter: 2022Q3

REPORT INFORMATION
  Report Type: Spontaneous
  Country: US (occurrence: US)
  Receive Date: 20220109
  Receipt Date: 20220711
  Transmission Date: 20221026
  Serious: No
  Sender: FDA-Public Use
  Company Number: US-SA-SAC20220104000020

PATIENT
  Age: 52 Year
  Sex: Female

DRUGS (1)
  1. DUPIXENT [Suspect]
     Active Substance: DUPILUMAB
     Dosage: 300 MG, QOW
     Route: 030
     Dates: start: 202110

REACTIONS (6)
  - Gastritis [Unknown]
  - Rhinorrhoea [Unknown]
  - Cough [Unknown]
  - Skin reaction [Unknown]
  - Skin burning sensation [Unknown]
  - Purpura [Unknown]

NARRATIVE: CASE EVENT DATE: 20211108
